FAERS Safety Report 18103420 (Version 1)
Quarter: 2020Q3

REPORT INFORMATION
  Report Type: Spontaneous
  Country: US (occurrence: US)
  Receive Date: 20200803
  Receipt Date: 20200803
  Transmission Date: 20201103
  Serious: Yes (Hospitalization)
  Sender: FDA-Public Use
  Company Number: US-MYLANLABS-2020M1067906

PATIENT
  Age: 1 Day

DRUGS (11)
  1. SUBUTEX [Interacting]
     Active Substance: BUPRENORPHINE HYDROCHLORIDE
     Indication: DRUG ABUSE
     Route: 064
  2. KEPPRA [Concomitant]
     Active Substance: LEVETIRACETAM
     Indication: DRUG WITHDRAWAL SYNDROME NEONATAL
     Dosage: 20 MILLIGRAM/KILOGRAM, QD, PARENT ROUTE : NOT APPLICABLE
     Route: 065
  3. MORPHINE [Suspect]
     Active Substance: MORPHINE
     Indication: PRODUCT USED FOR UNKNOWN INDICATION
     Route: 064
  4. PROMETHAZINE [Suspect]
     Active Substance: PROMETHAZINE HYDROCHLORIDE
     Indication: DRUG ABUSE
     Route: 064
  5. SUBOXONE [Suspect]
     Active Substance: BUPRENORPHINE HYDROCHLORIDE\NALOXONE HYDROCHLORIDE
     Indication: PRODUCT USED FOR UNKNOWN INDICATION
     Route: 064
  6. ZANTAC [Concomitant]
     Active Substance: RANITIDINE HYDROCHLORIDE
     Indication: DRUG WITHDRAWAL SYNDROME NEONATAL
     Dosage: 8 MILLIGRAM, BID, PARENT ROUTE : NOT APPLICABLE
     Route: 065
  7. FENTANYL. [Suspect]
     Active Substance: FENTANYL
     Indication: PRODUCT USED FOR UNKNOWN INDICATION
     Route: 064
  8. GABAPENTIN. [Suspect]
     Active Substance: GABAPENTIN
     Indication: PRODUCT USED FOR UNKNOWN INDICATION
     Route: 064
  9. METHADONE [Suspect]
     Active Substance: METHADONE HYDROCHLORIDE
     Indication: DRUG WITHDRAWAL SYNDROME NEONATAL
     Dosage: 0.07 MILLIGRAM/KILOGRAM, QD, PARENT ROUTE : NOT APPLICABLE
     Route: 065
  10. CLONIDINE. [Suspect]
     Active Substance: CLONIDINE
     Indication: DRUG WITHDRAWAL SYNDROME NEONATAL
     Dosage: 3 MICROGRAM, Q6H, PARENT ROUTE : NOT APPLICABLE
     Route: 065
  11. SIMETHICONE (DIMETHICONE) [Concomitant]
     Active Substance: DIMETHICONE
     Indication: DRUG WITHDRAWAL SYNDROME NEONATAL
     Dosage: 20 MILLIGRAM, Q6H, PARENT ROUTE : NOT APPLICABLE
     Route: 065

REACTIONS (4)
  - Foetal exposure during pregnancy [Recovered/Resolved]
  - Off label use [Unknown]
  - Drug withdrawal syndrome neonatal [Recovering/Resolving]
  - Treatment failure [Unknown]
